FAERS Safety Report 16152219 (Version 1)
Quarter: 2019Q2

REPORT INFORMATION
  Report Type: Spontaneous
  Country: FR (occurrence: FR)
  Receive Date: 20190403
  Receipt Date: 20190403
  Transmission Date: 20190711
  Serious: Yes (Hospitalization, Other)
  Sender: FDA-Public Use
  Company Number: FR-ASTELLAS-2019US014226

PATIENT
  Age: 51 Year
  Sex: Male

DRUGS (2)
  1. TACROLIMUS. [Suspect]
     Active Substance: TACROLIMUS
     Indication: LIVER TRANSPLANT
     Dosage: 0.5 MG, TWICE DAILY
     Route: 065
  2. MYCOPHENOLATE MOFETIL. [Suspect]
     Active Substance: MYCOPHENOLATE MOFETIL
     Indication: LIVER TRANSPLANT
     Route: 065

REACTIONS (9)
  - Ketoacidosis [Recovered/Resolved]
  - Leukocytosis [Recovered/Resolved]
  - Acute kidney injury [Recovered/Resolved]
  - Hepatocellular injury [Recovered/Resolved]
  - Septic shock [Recovered/Resolved]
  - Diabetes mellitus [Unknown]
  - Neutrophilia [Recovered/Resolved]
  - Acute respiratory distress syndrome [Recovered/Resolved]
  - Tularaemia [Recovered/Resolved]
